FAERS Safety Report 22216348 (Version 1)
Quarter: 2023Q2

REPORT INFORMATION
  Report Type: Other
  Country: GB (occurrence: GB)
  Receive Date: 20230417
  Receipt Date: 20230417
  Transmission Date: 20230722
  Serious: Yes (Other)
  Sender: FDA-Public Use
  Company Number: GB-DEXPHARM-20230871

PATIENT
  Age: 6 Year
  Sex: Male

DRUGS (4)
  1. Hydromol [Concomitant]
     Dosage: HYDROMOL OINTMENT TO WASH AND MOISTURIZE WITH
     Route: 061
  2. FLUCLOXACILLIN [Concomitant]
     Active Substance: FLUCLOXACILLIN
     Indication: Staphylococcal scalded skin syndrome
     Route: 048
  3. DERMOL [Suspect]
     Active Substance: BENZALKONIUM CHLORIDE\CHLORHEXIDINE HYDROCHLORIDE\ISOPROPYL MYRISTATE\PARAFFIN
     Indication: Staphylococcal scalded skin syndrome
     Dosage: TOPICAL EMOLLIENTS AND DERMOL 500 TO WASH WITH
     Route: 061
  4. CHLORHEXIDINE GLUCONATE [Suspect]
     Active Substance: CHLORHEXIDINE GLUCONATE

REACTIONS (2)
  - Dermatitis exfoliative [Recovered/Resolved]
  - Emotional distress [Unknown]
